FAERS Safety Report 8093244-1 (Version None)
Quarter: 2012Q1

REPORT INFORMATION
  Report Type: 
  Country: None (occurrence: None)
  Receive Date: 20120128
  Receipt Date: 20111006
  Transmission Date: 20120608
  Serious: No
  Sender: FDA-Public Use
  Company Number: US-ABBOTT-11P-163-0721498-00

PATIENT
  Age: 77 Year
  Sex: Female

DRUGS (12)
  1. CALCIUM CITRATE W/ VIT D [Concomitant]
     Indication: SUPPLEMENTATION THERAPY
     Dosage: DAILY
  2. HUMIRA [Suspect]
     Indication: CROHN'S DISEASE
     Dates: start: 20110330
  3. PENTASA [Suspect]
     Indication: CROHN'S DISEASE
     Dates: end: 20110501
  4. OMEPRAZOLE [Concomitant]
     Indication: PROPHYLAXIS AGAINST GASTROINTESTINAL ULCER
  5. PREDNISONE TAB [Concomitant]
     Indication: CROHN'S DISEASE
  6. ELECTROLYTE [Concomitant]
     Indication: SUPPLEMENTATION THERAPY
     Dosage: 3-4 TABS DAILY
  7. SYNTHROID MCG [Concomitant]
     Indication: THYROID FUNCTION TEST ABNORMAL
  8. HUMIRA [Suspect]
  9. ADVAIR DISKUS 100/50 [Concomitant]
     Indication: CHRONIC OBSTRUCTIVE PULMONARY DISEASE
     Dosage: 250/50 DAILY
  10. CALCITRIOL [Concomitant]
     Indication: SUPPLEMENTATION THERAPY
  11. POTASSIUM [Concomitant]
     Indication: SUPPLEMENTATION THERAPY
  12. CALCIUM CITRATE [Concomitant]
     Indication: PRODUCT USED FOR UNKNOWN INDICATION

REACTIONS (3)
  - DIARRHOEA [None]
  - DRUG INEFFECTIVE [None]
  - ALOPECIA [None]
